FAERS Safety Report 22234375 (Version 1)
Quarter: 2023Q2

REPORT INFORMATION
  Report Type: Spontaneous
  Country: US (occurrence: None)
  Receive Date: 20230420
  Receipt Date: 20230420
  Transmission Date: 20230722
  Serious: No
  Sender: FDA-Public Use
  Company Number: US-ROCHE-3177427

PATIENT
  Age: 75 Year
  Sex: Female

DRUGS (1)
  1. ESBRIET [Suspect]
     Active Substance: PIRFENIDONE
     Indication: Idiopathic pulmonary fibrosis
     Dosage: UNKNOWN
     Route: 048
     Dates: start: 20220908

REACTIONS (12)
  - Dizziness [Unknown]
  - Dyspnoea [Unknown]
  - Headache [Unknown]
  - Vomiting [Unknown]
  - Brain fog [Unknown]
  - Pulmonary congestion [Unknown]
  - Cough [Unknown]
  - Saliva altered [Unknown]
  - Nasal congestion [Unknown]
  - Hypotension [Unknown]
  - Skin burning sensation [Unknown]
  - Feeling hot [Unknown]

NARRATIVE: CASE EVENT DATE: 20220908
